FAERS Safety Report 6868607-X (Version None)
Quarter: 2010Q3

REPORT INFORMATION
  Report Type: 
  Country: None (occurrence: None)
  Receive Date: 20100721
  Receipt Date: 20100721
  Transmission Date: 20110219
  Serious: Yes (Other)
  Sender: FDA-Public Use
  Company Number: None

PATIENT
  Age: 34 Year
  Sex: Male
  Weight: 117 kg

DRUGS (5)
  1. MULTAQ [Suspect]
     Indication: ATRIAL FIBRILLATION
     Dosage: 400MG BID PO, APPROXIMATELY ONE YEAR
     Route: 048
  2. DILTIAZEM [Concomitant]
  3. WARFARIN [Concomitant]
  4. ALPRAZOLAM [Concomitant]
  5. ONEDARONE [Concomitant]

REACTIONS (2)
  - PNEUMONIA [None]
  - TREMOR [None]
